FAERS Safety Report 9069740 (Version 2)
Quarter: 2013Q2

REPORT INFORMATION
  Report Type: Spontaneous
  Country: DE (occurrence: DE)
  Receive Date: 20130131
  Receipt Date: 20130502
  Transmission Date: 20140414
  Serious: Yes (Hospitalization)
  Sender: FDA-Public Use
  Company Number: DE-ABBOTT-13P-062-1041747-00

PATIENT
  Age: 48 Year
  Sex: Male

DRUGS (4)
  1. HUMIRA [Suspect]
     Indication: CROHN^S DISEASE
     Route: 050
     Dates: start: 20100223
  2. AZATHIOPRINE [Concomitant]
     Indication: CROHN^S DISEASE
  3. METHOTREXATE [Concomitant]
     Indication: CROHN^S DISEASE
  4. CORTISONE [Concomitant]
     Indication: CROHN^S DISEASE

REACTIONS (4)
  - Ileus [Recovering/Resolving]
  - Ileus [Recovering/Resolving]
  - Device malfunction [Unknown]
  - Incorrect dose administered [Unknown]
